FAERS Safety Report 5293628-0 (Version None)
Quarter: 2007Q2

REPORT INFORMATION
  Report Type: 
  Country: None (occurrence: None)
  Receive Date: 20070411
  Receipt Date: 20070331
  Transmission Date: 20071010
  Serious: Yes (Hospitalization, Other)
  Sender: FDA-Public Use
  Company Number: US-BOEHRINGER INGELHEIM PHARMACEUTICALS, INC.-2007-BP-04640PF

PATIENT
  Sex: Female
  Weight: 54 kg

DRUGS (6)
  1. SPIRIVA [Suspect]
     Route: 055
     Dates: start: 20060101
  2. ATROVENT HFA [Suspect]
     Dates: start: 20070101
  3. CHANTIX [Suspect]
     Dates: end: 20070317
  4. PSYCHOTROPIC MEDICATIONS [Suspect]
  5. ADVAIR DISKUS 100/50 [Suspect]
     Indication: ASTHMA
     Dates: start: 20060101, end: 20070315
  6. ALBUTEROL [Suspect]
     Indication: ASTHMA
     Route: 055

REACTIONS (25)
  - ASTHENIA [None]
  - BIPOLAR DISORDER [None]
  - BLOOD CHOLESTEROL INCREASED [None]
  - BLOOD GLUCOSE INCREASED [None]
  - BLOOD SODIUM DECREASED [None]
  - BURNING SENSATION [None]
  - CLUMSINESS [None]
  - CONVULSION [None]
  - DELUSION [None]
  - DEPRESSED MOOD [None]
  - DRUG INTERACTION [None]
  - DYSPEPSIA [None]
  - DYSPNOEA [None]
  - FATIGUE [None]
  - HOT FLUSH [None]
  - HYPERHIDROSIS [None]
  - INSOMNIA [None]
  - MANIA [None]
  - MELAENA [None]
  - MONOPLEGIA [None]
  - NAUSEA [None]
  - PAIN [None]
  - PNEUMONIA [None]
  - STRESS [None]
  - SUDDEN ONSET OF SLEEP [None]
